FAERS Safety Report 5810673-4 (Version None)
Quarter: 2008Q3

REPORT INFORMATION
  Report Type: 
  Country: None (occurrence: None)
  Receive Date: 20080715
  Receipt Date: 20080701
  Transmission Date: 20090109
  Serious: Yes (Hospitalization)
  Sender: FDA-Public Use
  Company Number: DE-BOEHRINGER INGELHEIM GMBH, GERMANY-2008-DE-04072GL

PATIENT
  Sex: Female

DRUGS (5)
  1. TELMISARTAN [Suspect]
     Indication: HYPERTENSION
     Route: 048
     Dates: start: 20060201
  2. BLINDED VACCINE INJECTION [Suspect]
     Route: 030
     Dates: start: 20071012, end: 20071012
  3. RAMIPRIL [Suspect]
     Indication: DIASTOLIC HYPERTENSION
     Route: 048
     Dates: start: 20060201
  4. AMLODIPINE [Suspect]
     Indication: HYPERTENSION
     Route: 048
     Dates: start: 20060201
  5. ZOPICLONE [Concomitant]

REACTIONS (1)
  - ARRHYTHMIA [None]
